FAERS Safety Report 7815550-5 (Version None)
Quarter: 2011Q4

REPORT INFORMATION
  Report Type: 
  Country: None (occurrence: None)
  Receive Date: 20111014
  Receipt Date: 20110928
  Transmission Date: 20120403
  Serious: Yes (Hospitalization)
  Sender: FDA-Public Use
  Company Number: ID-ROCHE-1000112

PATIENT
  Age: 31 Year
  Sex: Female

DRUGS (5)
  1. PREDNISONE [Suspect]
     Indication: NON-HODGKIN'S LYMPHOMA
     Dates: start: 20090101
  2. VINCRISTINE [Suspect]
     Indication: NON-HODGKIN'S LYMPHOMA
     Dates: start: 20090101
  3. DOXORUBICIN HCL [Suspect]
     Indication: NON-HODGKIN'S LYMPHOMA
     Dates: start: 20090101
  4. MABTHERA [Suspect]
     Indication: NON-HODGKIN'S LYMPHOMA
     Route: 042
     Dates: start: 20090101
  5. CYCLOPHOSPHAMIDE [Suspect]
     Indication: NON-HODGKIN'S LYMPHOMA
     Dates: start: 20090101

REACTIONS (1)
  - CARDIOMYOPATHY [None]
